FAERS Safety Report 15696782 (Version 8)
Quarter: 2020Q2

REPORT INFORMATION
  Report Type: Spontaneous
  Country: US (occurrence: US)
  Receive Date: 20181206
  Receipt Date: 20200505
  Transmission Date: 20200713
  Serious: Yes (Hospitalization, Other)
  Sender: FDA-Public Use
  Company Number: US-PFIZER INC-2018492925

PATIENT
  Age: 74 Year
  Sex: Female
  Weight: 70 kg

DRUGS (3)
  1. XELJANZ XR [Suspect]
     Active Substance: TOFACITINIB CITRATE
     Indication: RHEUMATOID ARTHRITIS
     Dosage: 11 UNK
  2. XELJANZ XR [Suspect]
     Active Substance: TOFACITINIB CITRATE
     Indication: ARTHRITIS
     Dosage: 11 MG, DAILY
     Route: 048
     Dates: start: 20181203, end: 20190201
  3. METHOTREXATE. [Concomitant]
     Active Substance: METHOTREXATE
     Dosage: 2.5 MG, WEEKLY

REACTIONS (9)
  - Condition aggravated [Not Recovered/Not Resolved]
  - Myocardial infarction [Unknown]
  - Fungal infection [Unknown]
  - Gastroenteritis viral [Unknown]
  - Tendon rupture [Unknown]
  - Malaise [Unknown]
  - Psoriasis [Unknown]
  - Sinusitis [Not Recovered/Not Resolved]
  - Herpes zoster [Not Recovered/Not Resolved]

NARRATIVE: CASE EVENT DATE: 20191206
